FAERS Safety Report 17469037 (Version 3)
Quarter: 2021Q3

REPORT INFORMATION
  Report Type: Spontaneous
  Country: US (occurrence: US)
  Receive Date: 20200227
  Receipt Date: 20210719
  Transmission Date: 20211014
  Serious: Yes (Other)
  Sender: FDA-Public Use
  Company Number: US-SA-2020SA040482

PATIENT
  Age: 62 Year
  Sex: Female

DRUGS (1)
  1. DUPIXENT [Suspect]
     Active Substance: DUPILUMAB
     Indication: DERMATITIS ATOPIC
     Dosage: 300 MG/2ML
     Route: 058
     Dates: start: 20200130

REACTIONS (9)
  - Feeling hot [Unknown]
  - Unevaluable event [Unknown]
  - Erythema [Unknown]
  - Product dose omission issue [Unknown]
  - Lip swelling [Recovering/Resolving]
  - Eye pruritus [Unknown]
  - Product storage error [Unknown]
  - Eye swelling [Unknown]
  - Swelling face [Unknown]

NARRATIVE: CASE EVENT DATE: 202002
